FAERS Safety Report 12437942 (Version 1)
Quarter: 2016Q2

REPORT INFORMATION
  Report Type: Spontaneous
  Country: US (occurrence: None)
  Receive Date: 20160603
  Receipt Date: 20160603
  Transmission Date: 20160815
  Serious: No
  Sender: FDA-Public Use
  Company Number: None

PATIENT
  Age: 49 Year
  Sex: Female

DRUGS (1)
  1. HYDROXYCHLOROQUINE S 200MG MYLAN PHARMACEUTICALS INC [Suspect]
     Active Substance: HYDROXYCHLOROQUINE
     Indication: BRONCHITIS
     Route: 048
     Dates: start: 201509

REACTIONS (1)
  - Arthritis [None]

NARRATIVE: CASE EVENT DATE: 2016
